FAERS Safety Report 23359515 (Version 1)
Quarter: 2024Q1

REPORT INFORMATION
  Report Type: Report from Study
  Country: US (occurrence: US)
  Receive Date: 20240103
  Receipt Date: 20240103
  Transmission Date: 20240410
  Serious: No
  Sender: FDA-Public Use
  Company Number: US-ALXN-A202309989

PATIENT
  Sex: Male

DRUGS (1)
  1. ULTOMIRIS [Suspect]
     Active Substance: RAVULIZUMAB-CWVZ
     Indication: Myasthenia gravis
     Dosage: UNK
     Route: 065

REACTIONS (17)
  - Dizziness [Unknown]
  - Pain in extremity [Unknown]
  - Muscular weakness [Unknown]
  - Eyelid ptosis [Unknown]
  - Diplopia [Unknown]
  - Dysphagia [Recovering/Resolving]
  - Therapeutic response shortened [Unknown]
  - Mastication disorder [Unknown]
  - Gait disturbance [Unknown]
  - Posture abnormal [Unknown]
  - Dysstasia [Unknown]
  - Hypoaesthesia [Not Recovered/Not Resolved]
  - Eye disorder [Unknown]
  - Hyperhidrosis [Unknown]
  - Infusion site pain [Unknown]
  - Symptom recurrence [Recovered/Resolved]
  - Asthenia [Unknown]
